FAERS Safety Report 16840216 (Version 2)
Quarter: 2019Q4

REPORT INFORMATION
  Report Type: Spontaneous
  Country: US (occurrence: US)
  Receive Date: 20190923
  Receipt Date: 20191017
  Transmission Date: 20200122
  Serious: No
  Sender: FDA-Public Use
  Company Number: US-ASTRAZENECA-2019SF26649

PATIENT
  Age: 31063 Day
  Sex: Male
  Weight: 72.6 kg

DRUGS (2)
  1. PULMICORT FLEXHALER [Suspect]
     Active Substance: BUDESONIDE
     Indication: CHRONIC OBSTRUCTIVE PULMONARY DISEASE
     Dosage: 180.0UG AS REQUIRED
     Route: 055
     Dates: start: 2014
  2. IN-CRUSE ELIPTA [Concomitant]

REACTIONS (5)
  - Bronchitis chronic [Unknown]
  - General physical health deterioration [Unknown]
  - Intentional product misuse [Unknown]
  - Device issue [Unknown]
  - Emphysema [Unknown]

NARRATIVE: CASE EVENT DATE: 20190902
